FAERS Safety Report 19755667 (Version 1)
Quarter: 2021Q3

REPORT INFORMATION
  Report Type: Spontaneous
  Country: GB (occurrence: GB)
  Receive Date: 20210827
  Receipt Date: 20210827
  Transmission Date: 20211014
  Serious: Yes (Other)
  Sender: FDA-Public Use
  Company Number: GB-CURIUM-2021000620

PATIENT
  Age: 21 Day
  Sex: Female
  Weight: 2.8 kg

DRUGS (4)
  1. UTK (PERTECHNETATE (99MTC) SODIUM) [Suspect]
     Active Substance: TECHNETIUM TC-99M SODIUM PERTECHNETATE
     Route: 042
     Dates: start: 20210817, end: 20210817
  2. HDP (SODIUM OXIDRONATE) [Suspect]
     Active Substance: OXIDRONATE DISODIUM
     Route: 042
     Dates: start: 20210817, end: 20210817
  3. UTK (PERTECHNETATE (99MTC) SODIUM) [Suspect]
     Active Substance: TECHNETIUM TC-99M SODIUM PERTECHNETATE
     Route: 042
     Dates: start: 20210817, end: 20210817
  4. LEVOTHYROXINE 50MICROGRAMS/5ML [Concomitant]
     Route: 048
     Dates: start: 20210806

REACTIONS (4)
  - Poor quality product administered [Recovered/Resolved]
  - Suspected product contamination [Recovered/Resolved]
  - Radioisotope scan abnormal [Not Recovered/Not Resolved]
  - Drug ineffective [Not Recovered/Not Resolved]

NARRATIVE: CASE EVENT DATE: 20210817
